FAERS Safety Report 19692046 (Version 2)
Quarter: 2021Q4

REPORT INFORMATION
  Report Type: Spontaneous
  Country: US (occurrence: US)
  Receive Date: 20210812
  Receipt Date: 20211122
  Transmission Date: 20220303
  Serious: No
  Sender: FDA-Public Use
  Company Number: US-TARO-2021TAR00869

PATIENT

DRUGS (1)
  1. MICONAZOLE NITRATE [Suspect]
     Active Substance: MICONAZOLE NITRATE
     Indication: Vaginal discharge
     Dosage: UNK, DAILY, ONCE
     Route: 067
     Dates: start: 202105

REACTIONS (2)
  - Vaginal haemorrhage [Recovered/Resolved]
  - Product use issue [Unknown]
